FAERS Safety Report 6298779-X (Version None)
Quarter: 2009Q3

REPORT INFORMATION
  Report Type: 
  Country: None (occurrence: None)
  Receive Date: 20090806
  Receipt Date: 20071011
  Transmission Date: 20100115
  Serious: Yes (Other)
  Sender: FDA-Public Use
  Company Number: US-ASTRAZENECA-2006UW21846

PATIENT
  Age: 55 Year
  Sex: Female
  Weight: 103 kg

DRUGS (4)
  1. SEROQUEL [Suspect]
     Indication: DEPRESSION
     Dosage: 100 MG TO 500 MG
     Route: 048
     Dates: start: 19980101, end: 20060101
  2. SEROQUEL [Suspect]
     Indication: INSOMNIA
     Dosage: 100 MG TO 500 MG
     Route: 048
     Dates: start: 19980101, end: 20060101
  3. SEROQUEL [Suspect]
     Dosage: 100-200 MG
     Route: 048
     Dates: start: 20041004, end: 20060330
  4. SEROQUEL [Suspect]
     Dosage: 100-200 MG
     Route: 048
     Dates: start: 20041004, end: 20060330

REACTIONS (3)
  - DIABETES MELLITUS [None]
  - DIABETIC NEUROPATHY [None]
  - TYPE 2 DIABETES MELLITUS [None]
